FAERS Safety Report 4741049-9 (Version None)
Quarter: 2005Q3

REPORT INFORMATION
  Report Type: 
  Country: None (occurrence: None)
  Receive Date: 20050810
  Receipt Date: 20050609
  Transmission Date: 20060218
  Serious: No
  Sender: FDA-Public Use
  Company Number: US-GLAXOSMITHKLINE-A0562024A

PATIENT
  Age: 31 Year
  Sex: Female

DRUGS (3)
  1. PAXIL [Suspect]
     Dosage: 20MG PER DAY
     Route: 048
     Dates: start: 20010101, end: 20020101
  2. PAXIL CR [Suspect]
     Dosage: 25MG PER DAY
     Route: 048
     Dates: start: 20020101, end: 20040101
  3. SYNTHROID [Concomitant]

REACTIONS (8)
  - BREAST FEEDING [None]
  - DRUG WITHDRAWAL SYNDROME [None]
  - HEAD DISCOMFORT [None]
  - INFLUENZA LIKE ILLNESS [None]
  - LETHARGY [None]
  - MALAISE [None]
  - PAIN [None]
  - SEDATION [None]
